FAERS Safety Report 7324416-9 (Version None)
Quarter: 2011Q1

REPORT INFORMATION
  Report Type: 
  Country: None (occurrence: None)
  Receive Date: 20110301
  Receipt Date: 20110224
  Transmission Date: 20110831
  Serious: No
  Sender: FDA-Public Use
  Company Number: US-PFIZER INC-2011041673

PATIENT
  Sex: Female
  Weight: 97.5 kg

DRUGS (4)
  1. CADUET [Suspect]
     Indication: BLOOD CHOLESTEROL INCREASED
  2. NEXIUM [Concomitant]
     Indication: GASTROOESOPHAGEAL REFLUX DISEASE
     Dosage: 40 MG, AS NEEDED
     Route: 048
  3. ACTONEL [Concomitant]
     Indication: OSTEOARTHRITIS
     Dosage: 35 MG, MONTHLY
     Route: 048
  4. CADUET [Suspect]
     Indication: BLOOD PRESSURE INCREASED
     Dosage: UNK
     Dates: start: 20091201, end: 20110201

REACTIONS (1)
  - MALAISE [None]
